FAERS Safety Report 13456595 (Version 2)
Quarter: 2017Q2

REPORT INFORMATION
  Report Type: Spontaneous
  Country: TN (occurrence: TN)
  Receive Date: 20170419
  Receipt Date: 20170503
  Transmission Date: 20170830
  Serious: Yes (Other)
  Sender: FDA-Public Use
  Company Number: PHHY2017TN057121

PATIENT
  Age: 3 Year
  Sex: Male

DRUGS (3)
  1. OPATANOL [Suspect]
     Active Substance: OLOPATADINE
     Indication: PRODUCT USED FOR UNKNOWN INDICATION
     Dosage: 1 GTT, UNK
     Route: 047
  2. TOBRADEX [Suspect]
     Active Substance: DEXAMETHASONE\TOBRAMYCIN
     Indication: CONJUNCTIVITIS ALLERGIC
     Dosage: UNK UNK, TID
     Route: 047
  3. ZALERG [Suspect]
     Active Substance: KETOTIFEN FUMARATE
     Indication: PRODUCT USED FOR UNKNOWN INDICATION
     Dosage: UNK UNK, BID
     Route: 065

REACTIONS (9)
  - Pain [Unknown]
  - Ocular discomfort [Unknown]
  - Pruritus [Unknown]
  - Erythema [Unknown]
  - Urticaria [Recovering/Resolving]
  - Flushing [Unknown]
  - Hypersensitivity [Unknown]
  - Eye allergy [Unknown]
  - Eyelid oedema [Unknown]
